FAERS Safety Report 7495148-1 (Version None)
Quarter: 2011Q2

REPORT INFORMATION
  Report Type: 
  Country: None (occurrence: None)
  Receive Date: 20110520
  Receipt Date: 20110510
  Transmission Date: 20111010
  Serious: Yes (Death)
  Sender: FDA-Public Use
  Company Number: KR-WATSON-2011-05863

PATIENT
  Age: 64 Year
  Sex: Male

DRUGS (4)
  1. LEUCOVORIN CALCIUM [Suspect]
     Indication: GASTRIC CANCER
  2. OXALIPLATIN [Suspect]
     Indication: GASTRIC CANCER
     Dosage: UNK
  3. FLUOROURACIL [Suspect]
     Indication: GASTRIC CANCER
     Dosage: UNK
  4. LEUCOVORIN CALCIUM [Suspect]
     Indication: GASTRIC CANCER

REACTIONS (2)
  - RESPIRATORY FAILURE [None]
  - INTERSTITIAL LUNG DISEASE [None]
